FAERS Safety Report 24856635 (Version 1)
Quarter: 2025Q1

REPORT INFORMATION
  Report Type: Spontaneous
  Country: GB (occurrence: GB)
  Receive Date: 20250117
  Receipt Date: 20250117
  Transmission Date: 20250409
  Serious: Yes (Death, Hospitalization, Other)
  Sender: ELI LILLY AND COMPANY
  Company Number: None

PATIENT
  Age: 34 Year
  Sex: Female
  Weight: 107 kg

DRUGS (1)
  1. MOUNJARO [Suspect]
     Active Substance: TIRZEPATIDE
     Indication: Weight control
     Dosage: 10 MG, WEEKLY (1/W)
     Route: 065
     Dates: start: 20240717, end: 20241222

REACTIONS (13)
  - Pancreatitis necrotising [Fatal]
  - Multiple organ dysfunction syndrome [Unknown]
  - Hypoxia [Unknown]
  - Hyperkalaemia [Unknown]
  - Lactic acidosis [Unknown]
  - Portal vein thrombosis [Unknown]
  - Splenic artery thrombosis [Unknown]
  - Intra-abdominal fluid collection [Unknown]
  - Splenic infarction [Unknown]
  - Hepatic infarction [Unknown]
  - Acute kidney injury [Unknown]
  - Hypotension [Unknown]
  - Drug hypersensitivity [Unknown]

NARRATIVE: CASE EVENT DATE: 20241213
